FAERS Safety Report 4496395-3 (Version None)
Quarter: 2004Q4

REPORT INFORMATION
  Report Type: 
  Country: None (occurrence: None)
  Receive Date: 20041104
  Receipt Date: 20041102
  Transmission Date: 20050328
  Serious: Yes (Hospitalization)
  Sender: FDA-Public Use
  Company Number: US-2004-033948

PATIENT
  Age: 36 Year
  Sex: Female
  Weight: 62.6 kg

DRUGS (5)
  1. BETASERON [Suspect]
     Indication: MULTIPLE SCLEROSIS
     Dosage: 8 MIU, EVERY 2D, SUBCUTANEOUS
     Route: 058
     Dates: start: 20020218, end: 20040725
  2. EFFEXOR [Concomitant]
  3. TOPROL-XL [Concomitant]
  4. LESCOL XL [Concomitant]
  5. XANAX [Concomitant]

REACTIONS (6)
  - ASTHENIA [None]
  - BENIGN NEOPLASM OF THYROID GLAND [None]
  - INFLUENZA LIKE ILLNESS [None]
  - INJECTION SITE REACTION [None]
  - MULTIPLE SCLEROSIS RELAPSE [None]
  - URINARY TRACT INFECTION [None]
